FAERS Safety Report 16721504 (Version 1)
Quarter: 2019Q3

REPORT INFORMATION
  Report Type: Spontaneous
  Country: US (occurrence: US)
  Receive Date: 20190820
  Receipt Date: 20190820
  Transmission Date: 20191005
  Serious: No
  Sender: FDA-Public Use
  Company Number: US-BIODELIVERY SCIENCES INTERNATIONAL-2018BDSI0470

PATIENT
  Age: 67 Year
  Sex: Male

DRUGS (8)
  1. PROPRANOLOL [Concomitant]
     Active Substance: PROPRANOLOL HYDROCHLORIDE
     Indication: ESSENTIAL TREMOR
     Route: 048
  2. BUPRENORPHINE. [Suspect]
     Active Substance: BUPRENORPHINE
     Indication: PAIN
     Route: 002
     Dates: start: 20180629, end: 20180717
  3. BUPRENORPHINE. [Suspect]
     Active Substance: BUPRENORPHINE
     Route: 002
     Dates: start: 20180718, end: 201807
  4. TRAMADOL. [Concomitant]
     Active Substance: TRAMADOL
     Indication: ESSENTIAL TREMOR
     Route: 048
  5. BUPRENORPHINE. [Suspect]
     Active Substance: BUPRENORPHINE
     Route: 002
     Dates: start: 201807
  6. CLONAZEPAM. [Concomitant]
     Active Substance: CLONAZEPAM
     Indication: ESSENTIAL TREMOR
     Route: 048
  7. GABAPENTIN. [Concomitant]
     Active Substance: GABAPENTIN
     Indication: PAIN
     Route: 048
  8. DULOXETINE. [Concomitant]
     Active Substance: DULOXETINE
     Indication: PAIN
     Route: 048

REACTIONS (6)
  - Wrong technique in product usage process [Recovered/Resolved]
  - Inappropriate schedule of product administration [Recovered/Resolved]
  - Drug ineffective [Not Recovered/Not Resolved]
  - Product packaging difficult to open [Unknown]
  - Oral administration complication [Unknown]
  - Product adhesion issue [Not Recovered/Not Resolved]

NARRATIVE: CASE EVENT DATE: 2018
